FAERS Safety Report 7161968-6 (Version None)
Quarter: 2010Q4

REPORT INFORMATION
  Report Type: 
  Country: None (occurrence: None)
  Receive Date: 20101215
  Receipt Date: 20100729
  Transmission Date: 20110411
  Serious: Yes (Hospitalization, Other)
  Sender: FDA-Public Use
  Company Number: JP-PFIZER INC-2010087482

PATIENT
  Age: 82 Year
  Sex: Male
  Weight: 53.4 kg

DRUGS (3)
  1. LYRICA [Suspect]
     Indication: POST HERPETIC NEURALGIA
     Dosage: 75 MG, 2X/DAY
     Route: 048
     Dates: start: 20100625, end: 20100709
  2. CONIEL [Concomitant]
     Indication: HYPERTENSION
     Dosage: 4 MG PER DAY
     Route: 048
     Dates: start: 19950429
  3. CELTECT [Concomitant]
     Indication: PRURITUS
     Dosage: 10 MG PER DAY
     Dates: start: 20100205, end: 20100709

REACTIONS (1)
  - DIABETES MELLITUS [None]
